FAERS Safety Report 5590422-8 (Version None)
Quarter: 2008Q1

REPORT INFORMATION
  Report Type: 
  Country: None (occurrence: None)
  Receive Date: 20080114
  Receipt Date: 20080107
  Transmission Date: 20080703
  Serious: Yes (Hospitalization)
  Sender: FDA-Public Use
  Company Number: US-BAXTER-2008BH000218

PATIENT
  Age: 51 Year
  Sex: Male
  Weight: 104 kg

DRUGS (2)
  1. VANCOMYCIN [Suspect]
     Indication: INFECTION
     Dosage: DOSE UNIT:UNKNOWN
     Route: 042
     Dates: start: 20020101, end: 20020101
  2. LYRICA [Concomitant]
     Indication: NEURALGIA
     Route: 048
     Dates: start: 20060101

REACTIONS (5)
  - DEAFNESS [None]
  - DERMATITIS EXFOLIATIVE [None]
  - PAIN IN EXTREMITY [None]
  - PERIPHERAL NERVE INJURY [None]
  - SKIN DISCOLOURATION [None]
